FAERS Safety Report 6145740-1 (Version None)
Quarter: 2009Q2

REPORT INFORMATION
  Report Type: 
  Country: None (occurrence: None)
  Receive Date: 20090407
  Receipt Date: 20090327
  Transmission Date: 20091009
  Serious: Yes (Hospitalization)
  Sender: FDA-Public Use
  Company Number: CH-WYE-G03408009

PATIENT
  Age: 73 Year
  Sex: Female

DRUGS (13)
  1. EFFEXOR [Suspect]
     Route: 048
  2. STILNOX [Interacting]
     Route: 048
  3. TEMGESIC [Interacting]
     Dosage: .2 MG EVERY 1 PRN
     Route: 048
  4. LASIX [Concomitant]
     Route: 042
     Dates: start: 20090203, end: 20090203
  5. TORSEMIDE [Concomitant]
     Route: 048
  6. NEXIUM [Concomitant]
     Route: 042
  7. COMBIVENT [Concomitant]
     Route: 055
  8. LISINOPRIL [Concomitant]
     Route: 048
  9. ASPIRIN [Concomitant]
     Route: 048
  10. AMLODIPINE [Concomitant]
     Route: 048
  11. METFORMIN HCL [Concomitant]
     Route: 048
  12. TEMESTA [Interacting]
     Route: 048
     Dates: start: 20090203, end: 20090203
  13. CITALOPRAM [Concomitant]
     Route: 048

REACTIONS (7)
  - DRUG INTERACTION [None]
  - DRUG TOXICITY [None]
  - HYPOXIA [None]
  - PERIPHERAL ARTERIAL OCCLUSIVE DISEASE [None]
  - PNEUMONIA ASPIRATION [None]
  - RESPIRATORY FAILURE [None]
  - SOMNOLENCE [None]
